FAERS Safety Report 7237598-4 (Version None)
Quarter: 2011Q1

REPORT INFORMATION
  Report Type: 
  Country: None (occurrence: None)
  Receive Date: 20110121
  Receipt Date: 20110113
  Transmission Date: 20110831
  Serious: Yes (Other)
  Sender: FDA-Public Use
  Company Number: US-RB-019245-11

PATIENT
  Age: 60 Year
  Sex: Female

DRUGS (1)
  1. MUCINEX DM [Suspect]
     Dosage: PATIENT TOOK ONE TABLET 30 MINUTES AGO.
     Route: 048

REACTIONS (3)
  - AGITATION [None]
  - HEART RATE INCREASED [None]
  - BLOOD PRESSURE INCREASED [None]
